FAERS Safety Report 14789593 (Version 1)
Quarter: 2018Q2

REPORT INFORMATION
  Report Type: Spontaneous
  Country: US (occurrence: US)
  Receive Date: 20180423
  Receipt Date: 20180423
  Transmission Date: 20180711
  Serious: No
  Sender: FDA-Public Use
  Company Number: US-TEVA-771593ACC

PATIENT
  Sex: Male

DRUGS (2)
  1. NIACIN EXTENDED RELEASE TABLET [Suspect]
     Active Substance: NIACIN
     Indication: BLOOD CHOLESTEROL
  2. NIACIN EXTENDED RELEASE TABLET [Suspect]
     Active Substance: NIACIN
     Indication: BLOOD TRIGLYCERIDES
     Dates: start: 20170502, end: 20170503

REACTIONS (4)
  - Blood cholesterol increased [Recovered/Resolved]
  - Product physical issue [Unknown]
  - Blood triglycerides increased [Recovered/Resolved]
  - Skin burning sensation [Recovered/Resolved]

NARRATIVE: CASE EVENT DATE: 20170502
